FAERS Safety Report 20345601 (Version 1)
Quarter: 2022Q1

REPORT INFORMATION
  Report Type: Spontaneous
  Country: CA (occurrence: CA)
  Receive Date: 20220118
  Receipt Date: 20220118
  Transmission Date: 20220423
  Serious: Yes (Hospitalization)
  Sender: FDA-Public Use
  Company Number: CA-CELGENE-CAN-20220103810

PATIENT
  Age: 69 Year
  Sex: Male

DRUGS (1)
  1. IDHIFA [Suspect]
     Active Substance: ENASIDENIB MESYLATE
     Indication: Acute myeloid leukaemia
     Dosage: 100 MILLIGRAM
     Route: 048

REACTIONS (2)
  - Dyspnoea [Not Recovered/Not Resolved]
  - Hyperglycaemia [Not Recovered/Not Resolved]

NARRATIVE: CASE EVENT DATE: 20211129
